FAERS Safety Report 4685641-9 (Version None)
Quarter: 2005Q2

REPORT INFORMATION
  Report Type: 
  Country: None (occurrence: None)
  Receive Date: 20050608
  Receipt Date: 20050303
  Transmission Date: 20051028
  Serious: Yes (Hospitalization)
  Sender: FDA-Public Use
  Company Number: US-MERCK-0503USA00838

PATIENT
  Age: 61 Year
  Sex: Female
  Weight: 64 kg

DRUGS (5)
  1. VIOXX [Suspect]
     Indication: ARTHRALGIA
     Route: 048
     Dates: start: 20010601, end: 20030201
  2. NORVASC [Concomitant]
     Route: 065
     Dates: start: 19950601, end: 20030221
  3. LIPITOR [Concomitant]
     Route: 065
     Dates: start: 20000415
  4. ZOCOR [Concomitant]
     Route: 065
     Dates: start: 20000415
  5. ZOLOFT [Concomitant]
     Route: 065
     Dates: start: 19950220

REACTIONS (9)
  - BLOOD CHOLESTEROL INCREASED [None]
  - CEREBROVASCULAR ACCIDENT [None]
  - DIABETES MELLITUS [None]
  - EMOTIONAL DISTRESS [None]
  - MULTIPLE SCLEROSIS [None]
  - PHYSICAL DISABILITY [None]
  - PNEUMONIA [None]
  - POLYTRAUMATISM [None]
  - SPEECH DISORDER [None]
